FAERS Safety Report 24366636 (Version 1)
Quarter: 2024Q3

REPORT INFORMATION
  Report Type: Spontaneous
  Country: US (occurrence: None)
  Receive Date: 20240926
  Receipt Date: 20240926
  Transmission Date: 20241017
  Serious: Yes (Disabling)
  Sender: Public
  Company Number: None

PATIENT
  Age: 56 Year
  Sex: Female
  Weight: 85.95 kg

DRUGS (11)
  1. ALENDRONATE SODIUM [Suspect]
     Active Substance: ALENDRONATE SODIUM
     Indication: Osteopenia
     Dosage: OTHER QUANTITY : 1 TABLET(S);?
     Route: 048
     Dates: start: 20240831, end: 20240903
  2. PIMECROLIMUS [Concomitant]
     Active Substance: PIMECROLIMUS
  3. Albuterol sulfate inhalator [Concomitant]
  4. VITAMINS [Concomitant]
     Active Substance: VITAMINS
  5. vitamind3 [Concomitant]
  6. b12 [Concomitant]
  7. COENZYME Q10 [Concomitant]
     Active Substance: DIETARY SUPPLEMENT\UBIDECARENONE
  8. FISH OIL [Concomitant]
     Active Substance: FISH OIL
  9. flax oil [Concomitant]
  10. cinnomin [Concomitant]
  11. CALCIUM [Concomitant]
     Active Substance: CALCIUM

REACTIONS (2)
  - Abdominal pain upper [None]
  - Dyspepsia [None]

NARRATIVE: CASE EVENT DATE: 20240831
